FAERS Safety Report 18149651 (Version 2)
Quarter: 2020Q3

REPORT INFORMATION
  Report Type: Spontaneous
  Country: US (occurrence: US)
  Receive Date: 20200814
  Receipt Date: 20200904
  Transmission Date: 20201103
  Serious: Yes (Other)
  Sender: FDA-Public Use
  Company Number: US-HBP-2020US020921

PATIENT
  Age: 69 Year
  Sex: Female

DRUGS (15)
  1. VITAMIN B?6 [Concomitant]
     Active Substance: PYRIDOXINE
  2. FOLIC ACID. [Concomitant]
     Active Substance: FOLIC ACID
  3. CHROMIUM PICOLINATE [Concomitant]
     Active Substance: CHROMIUM PICOLINATE
  4. VALCHLOR [Suspect]
     Active Substance: MECHLORETHAMINE
     Indication: CUTANEOUS T-CELL LYMPHOMA
     Dosage: UNK, QD
     Route: 061
     Dates: start: 20160126
  5. ASPIRIN                            /00002701/ [Concomitant]
     Active Substance: ASPIRIN
  6. CALCIUM MAGNESIUM ZINC             /01320801/ [Concomitant]
  7. ATORVASTATIN CALCIUM. [Concomitant]
     Active Substance: ATORVASTATIN CALCIUM
  8. FISH OIL [Concomitant]
     Active Substance: FISH OIL
  9. LUTEIN                             /01638501/ [Concomitant]
     Active Substance: LUTEIN
  10. VITAMIN D3 [Concomitant]
     Active Substance: CHOLECALCIFEROL
  11. SYNTHROID [Concomitant]
     Active Substance: LEVOTHYROXINE SODIUM
  12. PLAVIX [Concomitant]
     Active Substance: CLOPIDOGREL BISULFATE
  13. COREG CR [Concomitant]
     Active Substance: CARVEDILOL PHOSPHATE
  14. NEURONTIN [Concomitant]
     Active Substance: GABAPENTIN
  15. MULTIVITAMIN 50 PLUS [Concomitant]

REACTIONS (9)
  - Skin ulcer [Recovered/Resolved]
  - Condition aggravated [Recovered/Resolved]
  - Application site swelling [Recovered/Resolved]
  - Application site erosion [Recovered/Resolved]
  - Neoplasm skin [Recovered/Resolved]
  - Hiatus hernia [Unknown]
  - Skin weeping [Recovered/Resolved]
  - Pain [Unknown]
  - Intentional product misuse [Unknown]

NARRATIVE: CASE EVENT DATE: 201710
